FAERS Safety Report 24322176 (Version 2)
Quarter: 2025Q2

REPORT INFORMATION
  Report Type: Spontaneous
  Country: US (occurrence: US)
  Receive Date: 20240916
  Receipt Date: 20250508
  Transmission Date: 20250717
  Serious: Yes (Disabling, Other)
  Sender: TEVA
  Company Number: US-TEVA-VS-3242373

PATIENT
  Age: 67 Year
  Sex: Female

DRUGS (3)
  1. DOCETAXEL [Suspect]
     Active Substance: DOCETAXEL
     Indication: Breast cancer
     Dosage: FROM APPROXIMATELY 2014-08-25 THROUGH 2014-12-08?6 CYCLES?C1: 121.5MG, C2: 16MG, C3: 164MG, C4: 1...
     Route: 065
     Dates: start: 20140825, end: 20141208
  2. LATISSE [Concomitant]
     Active Substance: BIMATOPROST
     Indication: Product used for unknown indication
     Route: 061
     Dates: start: 20141110, end: 20180117
  3. KETOROLAC [Concomitant]
     Active Substance: KETOROLAC TROMETHAMINE
     Indication: Product used for unknown indication
     Dosage: 0.5% EYE?INSTILL 1 DROP BY OPHTHALMIC ROUTE 4 TIMES EVERY DAY INTO AFFECTED EYE(S)
     Route: 065
     Dates: start: 20141110, end: 20180117

REACTIONS (6)
  - Dacryostenosis acquired [Unknown]
  - Dacryostenosis acquired [Unknown]
  - Dacryoadenitis acquired [Unknown]
  - Visual impairment [Unknown]
  - Keratitis [Unknown]
  - Cataract [Unknown]
